FAERS Safety Report 9416726 (Version 1)
Quarter: 2013Q3

REPORT INFORMATION
  Report Type: Spontaneous
  Country: NO (occurrence: NO)
  Receive Date: 20130724
  Receipt Date: 20130724
  Transmission Date: 20140515
  Serious: Yes (Life-Threatening, Hospitalization)
  Sender: FDA-Public Use
  Company Number: NO-PFIZER INC-2013214127

PATIENT
  Age: 74 Year
  Sex: Female

DRUGS (12)
  1. CYKLOKAPRON [Suspect]
     Indication: PEPTIC ULCER HAEMORRHAGE
     Dosage: 1 G, TWICE DAILY
     Dates: start: 20130601
  2. KONAKION NOVUM [Suspect]
     Indication: PEPTIC ULCER HAEMORRHAGE
     Dosage: 5 MG, 3X/DAY
     Dates: start: 20130601
  3. LEVAXIN [Concomitant]
     Indication: HYPOTHYROIDISM
     Dosage: 100 MICROGRAM DAILY 6 DAYS A WEEK WITHOUT SUNDAY, 50 MICROGRAM EVERY SUNDAY
     Route: 048
  4. ACETYLSALICYLIC ACID [Concomitant]
     Route: 042
     Dates: start: 20130604
  5. SIMVASTATIN [Concomitant]
     Dosage: 40 MG, DAILY
     Route: 048
  6. IMDUR [Concomitant]
     Dosage: 30 MG, DAILY
     Route: 048
  7. DIURAL [Concomitant]
     Dosage: 20 MG, TWICE DAILY
     Route: 048
  8. SELO-ZOK [Concomitant]
     Dosage: 50 MG + 2,5 MG
  9. SOMAC [Concomitant]
     Dosage: 40 MG, TWICE A DAY
     Route: 048
  10. MAREVAN [Concomitant]
     Dosage: 4 TABLETS PER WEEK
     Route: 048
  11. TRIATEC [Concomitant]
     Dosage: 2.5 MG, TWICE DAILY
     Route: 048
  12. HEPARIN [Concomitant]
     Route: 022
     Dates: start: 20130604

REACTIONS (3)
  - Cerebral infarction [Recovering/Resolving]
  - Pulmonary embolism [Recovering/Resolving]
  - Acute myocardial infarction [Recovering/Resolving]
